FAERS Safety Report 17568052 (Version 1)
Quarter: 2020Q1

REPORT INFORMATION
  Report Type: Report from Study
  Country: US (occurrence: US)
  Receive Date: 20200320
  Receipt Date: 20200320
  Transmission Date: 20200409
  Serious: Yes (Death)
  Sender: FDA-Public Use
  Company Number: US-ASTRAZENECA-2020SE40305

PATIENT
  Sex: Male

DRUGS (2)
  1. OLAPARIB. [Suspect]
     Active Substance: OLAPARIB
     Indication: HORMONE-REFRACTORY PROSTATE CANCER
     Route: 048
  2. PEMBROLIZUMAB. [Suspect]
     Active Substance: PEMBROLIZUMAB
     Indication: HORMONE-REFRACTORY PROSTATE CANCER
     Route: 042

REACTIONS (1)
  - Myocardial infarction [Fatal]
